FAERS Safety Report 9788330 (Version 1)
Quarter: 2013Q4

REPORT INFORMATION
  Report Type: Spontaneous
  Country: US (occurrence: US)
  Receive Date: 20131230
  Receipt Date: 20131230
  Transmission Date: 20140711
  Serious: Yes (Death)
  Sender: FDA-Public Use
  Company Number: US-ASTRAZENECA-2013SE94136

PATIENT
  Age: 84 Year
  Sex: Male
  Weight: 68 kg

DRUGS (5)
  1. NEXIUM [Suspect]
     Indication: REFLUX GASTRITIS
     Route: 048
     Dates: end: 201207
  2. CRESTOR [Suspect]
     Indication: BLOOD CHOLESTEROL INCREASED
     Route: 048
  3. ASTRAMORPH [Suspect]
     Route: 065
  4. WARFARIN [Concomitant]
     Indication: ATRIAL FIBRILLATION
  5. UNKNOWN MEDICATION FOR BLOOD PRESSURE [Concomitant]
     Indication: BLOOD PRESSURE ABNORMAL

REACTIONS (2)
  - Bladder cancer [Fatal]
  - Bone cancer [Fatal]
